FAERS Safety Report 20615381 (Version 1)
Quarter: 2022Q1

REPORT INFORMATION
  Report Type: Spontaneous
  Country: US (occurrence: US)
  Receive Date: 20220321
  Receipt Date: 20220321
  Transmission Date: 20220424
  Serious: No
  Sender: FDA-Public Use
  Company Number: US-AMGEN-USASP2022047036

PATIENT
  Age: 60 Year
  Sex: Female

DRUGS (3)
  1. EPOETIN ALFA [Suspect]
     Active Substance: ERYTHROPOIETIN
     Indication: Anaemia
     Dosage: UNK UNK, Q3WK
     Route: 058
  2. EPOETIN ALFA [Suspect]
     Active Substance: ERYTHROPOIETIN
     Indication: Off label use
  3. FERRIC SODIUM GLUCONATE [Concomitant]
     Indication: Anaemia
     Dosage: UNK UNK, QD
     Route: 042

REACTIONS (2)
  - Haemoglobin decreased [Unknown]
  - Off label use [Unknown]
